FAERS Safety Report 5723846-6 (Version None)
Quarter: 2008Q2

REPORT INFORMATION
  Report Type: 
  Country: None (occurrence: None)
  Receive Date: 20080430
  Receipt Date: 20080422
  Transmission Date: 20081010
  Serious: Yes (Hospitalization)
  Sender: FDA-Public Use
  Company Number: NL-AVENTIS-200813656GDDC

PATIENT
  Age: 61 Year
  Sex: Male
  Weight: 85 kg

DRUGS (6)
  1. ANADRON [Suspect]
     Route: 048
     Dates: start: 20080409, end: 20080410
  2. GLIMEPIRIDE [Concomitant]
     Dates: start: 20070702
  3. SPIRONOLACTONUM [Concomitant]
     Dates: start: 20061117
  4. PANTOZOL                           /01263202/ [Concomitant]
     Dates: start: 20071211
  5. COZAAR [Concomitant]
     Dates: start: 20021104
  6. METFORMIN HCL [Concomitant]
     Dates: start: 20051208

REACTIONS (4)
  - CHOREA [None]
  - DELIRIUM [None]
  - DIZZINESS [None]
  - VISUAL DISTURBANCE [None]
